FAERS Safety Report 12888969 (Version 2)
Quarter: 2016Q4

REPORT INFORMATION
  Report Type: Spontaneous
  Country: IT (occurrence: IT)
  Receive Date: 20161027
  Receipt Date: 20161108
  Transmission Date: 20170207
  Serious: Yes (Other)
  Sender: FDA-Public Use
  Company Number: IT-PFIZER INC-2016488397

PATIENT
  Age: 46 Year
  Sex: Male

DRUGS (7)
  1. CYCLOSPORIN [Suspect]
     Active Substance: CYCLOSPORINE
     Dosage: 3300 MG, DAILY
     Dates: start: 20161015
  2. GANCICLOVIR. [Suspect]
     Active Substance: GANCICLOVIR
     Indication: INFECTION PROPHYLAXIS
     Dosage: 5 MG/KG, DAILY
     Route: 042
     Dates: start: 20151004
  3. MYCOPHENOLATE MOFETIL. [Suspect]
     Active Substance: MYCOPHENOLATE MOFETIL
     Indication: PROPHYLAXIS
     Dosage: UNK
  4. CYCLOSPORIN [Suspect]
     Active Substance: CYCLOSPORINE
     Dosage: 957 MG, DAILY (D-3 AND  D-2)
     Dates: start: 20151004, end: 20151011
  5. FLUDARABINE PHOSPHATE. [Suspect]
     Active Substance: FLUDARABINE PHOSPHATE
     Dosage: 46 MG, DAILY (D-6 TO D-2)
     Dates: start: 20151004, end: 20151011
  6. BUSULFAN. [Suspect]
     Active Substance: BUSULFAN
     Dosage: 200 MG, DAILY (D-7  TO D-4)
     Route: 042
     Dates: start: 20151004, end: 20151011
  7. TACROLIMUS. [Suspect]
     Active Substance: TACROLIMUS
     Indication: PROPHYLAXIS
     Dosage: UNK

REACTIONS (2)
  - Enterococcal infection [Unknown]
  - Cytomegalovirus infection [Unknown]

NARRATIVE: CASE EVENT DATE: 20151111
